FAERS Safety Report 8100257-X (Version None)
Quarter: 2012Q1

REPORT INFORMATION
  Report Type: 
  Country: None (occurrence: None)
  Receive Date: 20120131
  Receipt Date: 20120124
  Transmission Date: 20120608
  Serious: Yes (Hospitalization)
  Sender: FDA-Public Use
  Company Number: JP-BRISTOL-MYERS SQUIBB COMPANY-16354417

PATIENT
  Age: 3 Decade
  Sex: Male
  Weight: 84 kg

DRUGS (9)
  1. LOCOID [Concomitant]
     Indication: RASH
     Dosage: Q1 AS REQUIRED ROUTE:EXT
     Dates: start: 20120110
  2. CEFAZOLIN SODIUM [Concomitant]
     Route: 048
     Dates: start: 20111224
  3. LIDOMEX [Concomitant]
     Indication: RASH
     Dosage: Q1 AS REQUIRED ROUTE:EXT
     Dates: start: 20120110
  4. GASMOTIN [Concomitant]
     Route: 048
     Dates: start: 20111209
  5. CETUXIMAB [Suspect]
     Indication: GASTRIC CANCER
     Dosage: STRENGTH:5MG/ML 0N 05JAN2012,512.5MG,1 IN 1 WK
     Route: 042
     Dates: start: 20111227
  6. TS-1 [Suspect]
     Indication: GASTRIC CANCER
     Dosage: CAPS INTERRUPTED ON 11JAN2012
     Route: 048
     Dates: start: 20111227
  7. NIZORAL [Concomitant]
     Indication: TINEA PEDIS
     Dosage: Q1 AS REQUIRED ROUTE:EXT
     Dates: start: 20111221
  8. CISPLATIN [Suspect]
     Indication: GASTRIC CANCER
     Dosage: ON DAY 8 OF EACH CYCLE
     Route: 042
     Dates: start: 20120105
  9. HIRUDOID [Concomitant]
     Indication: PROPHYLAXIS
     Dosage: Q1 AS REQUIRED HIRUDOID SOFT ROUTE:EXT
     Dates: start: 20111221

REACTIONS (1)
  - ACUTE MYOCARDIAL INFARCTION [None]
